FAERS Safety Report 6753279-5 (Version None)
Quarter: 2010Q2

REPORT INFORMATION
  Report Type: 
  Country: None (occurrence: None)
  Receive Date: 20100603
  Receipt Date: 20100520
  Transmission Date: 20101027
  Serious: Yes (Other)
  Sender: FDA-Public Use
  Company Number: US-ELI_LILLY_AND_COMPANY-US201003005157

PATIENT
  Sex: Female

DRUGS (9)
  1. FORTEO [Suspect]
     Indication: OSTEOPOROSIS
     Dosage: 20 UG, DAILY (1/D)
     Route: 065
     Dates: start: 20100108, end: 20100119
  2. FORTEO [Suspect]
     Dosage: 20 UG, DAILY (1/D)
     Dates: start: 20100313
  3. NEXIUM [Concomitant]
  4. SYNTHROID [Concomitant]
  5. ARAVA [Concomitant]
  6. PREDNISONE [Concomitant]
  7. CELEBREX [Concomitant]
  8. ZOCOR [Concomitant]
  9. VICODIN [Concomitant]

REACTIONS (5)
  - ABDOMINAL PAIN UPPER [None]
  - INTERVERTEBRAL DISC PROTRUSION [None]
  - MALAISE [None]
  - NAUSEA [None]
  - SPINAL FRACTURE [None]
